FAERS Safety Report 6904396-8 (Version None)
Quarter: 2010Q3

REPORT INFORMATION
  Report Type: 
  Country: None (occurrence: None)
  Receive Date: 20100804
  Receipt Date: 20090511
  Transmission Date: 20110219
  Serious: No
  Sender: FDA-Public Use
  Company Number: US-PFIZER INC-2009212527

PATIENT
  Sex: Female
  Weight: 62.132 kg

DRUGS (2)
  1. LYRICA [Suspect]
     Indication: COMPLEX REGIONAL PAIN SYNDROME
     Dosage: 100 MG, UNK
     Dates: start: 20090101
  2. LYRICA [Suspect]
     Indication: PAIN

REACTIONS (5)
  - ASTHENOPIA [None]
  - DRY EYE [None]
  - EYE DISORDER [None]
  - EYE IRRITATION [None]
  - VISION BLURRED [None]
